FAERS Safety Report 12105687 (Version 2)
Quarter: 2016Q1

REPORT INFORMATION
  Report Type: Spontaneous
  Country: FR (occurrence: FR)
  Receive Date: 20160223
  Receipt Date: 20160302
  Transmission Date: 20160526
  Serious: Yes (Other)
  Sender: FDA-Public Use
  Company Number: FR-PFIZER INC-2016096483

PATIENT
  Age: 38 Year
  Sex: Female
  Weight: 64 kg

DRUGS (6)
  1. TRIFLUCAN [Suspect]
     Active Substance: FLUCONAZOLE
     Dosage: 50 MG/5 ML
     Route: 048
     Dates: start: 201601, end: 20160129
  2. CANCIDAS [Concomitant]
     Active Substance: CASPOFUNGIN ACETATE
     Indication: CANDIDA INFECTION
  3. TRIFLUCAN [Suspect]
     Active Substance: FLUCONAZOLE
     Dosage: 2800 MG, DAILY
     Route: 048
     Dates: start: 20160121, end: 20160121
  4. TRIFLUCAN [Suspect]
     Active Substance: FLUCONAZOLE
     Dosage: 200 MG/5 ML
     Route: 048
     Dates: start: 201601, end: 20160126
  5. TRIFLUCAN [Suspect]
     Active Substance: FLUCONAZOLE
     Dosage: 1050 MG, DAILY
     Route: 048
     Dates: start: 20160127, end: 20160127
  6. TRIFLUCAN [Suspect]
     Active Substance: FLUCONAZOLE
     Indication: CANDIDA INFECTION
     Dosage: 800 MG, DAILY
     Route: 048
     Dates: start: 20160120, end: 20160120

REACTIONS (3)
  - Tinnitus [Recovered/Resolved]
  - Accidental overdose [Recovered/Resolved]
  - Hallucination, visual [Recovered/Resolved]

NARRATIVE: CASE EVENT DATE: 20160121
